FAERS Safety Report 19708082 (Version 1)
Quarter: 2021Q3

REPORT INFORMATION
  Report Type: Spontaneous
  Country: US (occurrence: US)
  Receive Date: 20210817
  Receipt Date: 20210817
  Transmission Date: 20211014
  Serious: Yes (Other)
  Sender: FDA-Public Use
  Company Number: None

PATIENT
  Age: 69 Year
  Sex: Male
  Weight: 94.5 kg

DRUGS (6)
  1. KRATOM [Suspect]
     Active Substance: HERBALS\MITRAGYNINE
     Indication: ANXIETY
     Dates: start: 20190701, end: 20210802
  2. LISINOPRIL. [Concomitant]
     Active Substance: LISINOPRIL
  3. OMIPREZOLE [Concomitant]
  4. METOPROLOL. [Concomitant]
     Active Substance: METOPROLOL
  5. LIPITOR [Concomitant]
     Active Substance: ATORVASTATIN CALCIUM
  6. ASA [Concomitant]
     Active Substance: ASPIRIN

REACTIONS (3)
  - Tremor [None]
  - Asthenia [None]
  - Gait inability [None]

NARRATIVE: CASE EVENT DATE: 20201225
